FAERS Safety Report 12380337 (Version 1)
Quarter: 2016Q2

REPORT INFORMATION
  Report Type: Spontaneous
  Country: US (occurrence: None)
  Receive Date: 20160517
  Receipt Date: 20160517
  Transmission Date: 20160815
  Serious: Yes (Disabling)
  Sender: FDA-Public Use
  Company Number: None

PATIENT
  Age: 62 Year
  Sex: Female
  Weight: 88.45 kg

DRUGS (4)
  1. TEGRETOL [Concomitant]
     Active Substance: CARBAMAZEPINE
  2. LEVOTHYROXINE. [Concomitant]
     Active Substance: LEVOTHYROXINE
  3. NARCOTICS [Concomitant]
     Active Substance: UNSPECIFIED INGREDIENT
  4. AVELOX [Suspect]
     Active Substance: MOXIFLOXACIN HYDROCHLORIDE
     Indication: EAR INFECTION
     Route: 048

REACTIONS (12)
  - Stevens-Johnson syndrome [None]
  - Dizziness [None]
  - Nausea [None]
  - Vision blurred [None]
  - Neuropathy peripheral [None]
  - Temperature intolerance [None]
  - Costochondritis [None]
  - Abasia [None]
  - Orthostatic hypotension [None]
  - Syncope [None]
  - Impaired gastric emptying [None]
  - Trigeminal neuralgia [None]

NARRATIVE: CASE EVENT DATE: 20070901
